FAERS Safety Report 23476788 (Version 1)
Quarter: 2024Q1

REPORT INFORMATION
  Report Type: Report from Study
  Country: US (occurrence: US)
  Receive Date: 20240204
  Receipt Date: 20240204
  Transmission Date: 20240410
  Serious: No
  Sender: FDA-Public Use
  Company Number: US-EXELIXIS-CABO-23064258

PATIENT
  Sex: Female

DRUGS (1)
  1. CABOMETYX [Suspect]
     Active Substance: CABOZANTINIB S-MALATE
     Indication: Hepatic cancer
     Dosage: 60 MG, QD
     Route: 048
     Dates: start: 20230508

REACTIONS (17)
  - Chest pain [Unknown]
  - Muscular weakness [Unknown]
  - Nasal dryness [Unknown]
  - Nasal congestion [Unknown]
  - Hair colour changes [Unknown]
  - Bone pain [Unknown]
  - Back pain [Unknown]
  - Arthralgia [Unknown]
  - Fatigue [Unknown]
  - Headache [Unknown]
  - White blood cell count decreased [Unknown]
  - Diarrhoea [Unknown]
  - Taste disorder [Unknown]
  - Weight decreased [Unknown]
  - Asthenia [Unknown]
  - Blood pressure increased [Unknown]
  - Product dose omission issue [Unknown]
